FAERS Safety Report 4853140-7 (Version None)
Quarter: 2005Q4

REPORT INFORMATION
  Report Type: 
  Country: None (occurrence: None)
  Receive Date: 20051214
  Receipt Date: 20051205
  Transmission Date: 20060501
  Serious: Yes (Other)
  Sender: FDA-Public Use
  Company Number: DE-BRISTOL-MYERS SQUIBB COMPANY-13204433

PATIENT
  Age: 44 Year
  Sex: Female

DRUGS (2)
  1. CISPLATIN [Suspect]
     Indication: CERVIX CARCINOMA
  2. RADIATION THERAPY [Suspect]
     Indication: CERVIX CARCINOMA

REACTIONS (1)
  - NECROSIS [None]
